FAERS Safety Report 6716125-1 (Version None)
Quarter: 2010Q2

REPORT INFORMATION
  Report Type: 
  Country: None (occurrence: None)
  Receive Date: 20100506
  Receipt Date: 20100506
  Transmission Date: 20101027
  Serious: Yes (Hospitalization)
  Sender: FDA-Public Use
  Company Number: None

PATIENT
  Age: 41 Year
  Sex: Female
  Weight: 61 kg

DRUGS (2)
  1. LOVENOX [Suspect]
     Indication: DEEP VEIN THROMBOSIS
     Dosage: ENOXAPARIN 80 MG BID SQ
     Route: 058
     Dates: start: 20100227, end: 20100311
  2. LOVENOX [Suspect]
     Indication: PULMONARY EMBOLISM
     Dosage: ENOXAPARIN 80 MG BID SQ
     Route: 058
     Dates: start: 20100227, end: 20100311

REACTIONS (6)
  - BLOOD PRESSURE DECREASED [None]
  - DIZZINESS [None]
  - HEART RATE INCREASED [None]
  - PALLOR [None]
  - RETROPERITONEAL HAEMORRHAGE [None]
  - URINE OUTPUT DECREASED [None]
